FAERS Safety Report 8964036 (Version 1)
Quarter: 2012Q4

REPORT INFORMATION
  Report Type: 
  Country: CZ (occurrence: CZ)
  Receive Date: 20121214
  Receipt Date: 20121214
  Transmission Date: 20130627
  Serious: Yes (Other)
  Sender: FDA-Public Use
  Company Number: CZ-JNJFOC-20121202423

PATIENT

DRUGS (6)
  1. DOXORUBICIN [Suspect]
     Indication: THYMOMA MALIGNANT
     Dosage: 4-8 cycles
     Route: 042
  2. CISPLATIN [Suspect]
     Indication: THYMOMA MALIGNANT
     Dosage: 4-8 cycles
     Route: 065
  3. ETOPOSIDE [Suspect]
     Indication: THYMOMA MALIGNANT
     Dosage: 4-8 cycles
     Route: 065
  4. CYCLOPHOSPHAMIDE [Suspect]
     Indication: THYMOMA MALIGNANT
     Dosage: 4-8 cycles
     Route: 065
  5. VINCRISTINE [Suspect]
     Indication: THYMOMA MALIGNANT
     Dosage: 4-8 cycles
     Route: 065
  6. RADIATION THERAPY [Suspect]
     Indication: THYMOMA MALIGNANT
     Dosage: Planned: 50-60 Gy, 

Applied 45-68 Gy
     Route: 065

REACTIONS (3)
  - Radiation pneumonitis [Unknown]
  - Radiation fibrosis [Unknown]
  - Off label use [Unknown]
